FAERS Safety Report 17182173 (Version 1)
Quarter: 2019Q4

REPORT INFORMATION
  Report Type: Report from Study
  Country: PK (occurrence: PK)
  Receive Date: 20191219
  Receipt Date: 20191219
  Transmission Date: 20200122
  Serious: Yes (Other)
  Sender: FDA-Public Use
  Company Number: NVSC2019PK016253

PATIENT
  Sex: Female
  Weight: 70 kg

DRUGS (1)
  1. AFINITOR [Suspect]
     Active Substance: EVEROLIMUS
     Indication: BREAST CANCER
     Dosage: 10 MG, QD
     Route: 048
     Dates: start: 20190109, end: 20191009

REACTIONS (9)
  - Erythema [Unknown]
  - Urticaria [Unknown]
  - Therapeutic response decreased [Not Recovered/Not Resolved]
  - Mouth swelling [Unknown]
  - Stomatitis [Not Recovered/Not Resolved]
  - Anaphylactic reaction [Unknown]
  - Pruritus [Unknown]
  - Flushing [Unknown]
  - Rash [Unknown]
